FAERS Safety Report 21693721 (Version 3)
Quarter: 2023Q4

REPORT INFORMATION
  Report Type: Report from Study
  Country: ZA (occurrence: ZA)
  Receive Date: 20221207
  Receipt Date: 20231109
  Transmission Date: 20240110
  Serious: Yes (Other)
  Sender: FDA-Public Use
  Company Number: ZA-002147023-NVSC2022ZA231981

PATIENT
  Age: 65 Year
  Sex: Male

DRUGS (2)
  1. COSENTYX [Suspect]
     Active Substance: SECUKINUMAB
     Indication: Ankylosing spondylitis
     Dosage: 150 MG, QW
     Route: 058
     Dates: start: 20220929
  2. COSENTYX [Suspect]
     Active Substance: SECUKINUMAB
     Dosage: 150 MG, QMO
     Route: 058

REACTIONS (18)
  - Thrombosis [Unknown]
  - Osteitis [Unknown]
  - Pain in jaw [Unknown]
  - Ear pain [Unknown]
  - Gingival swelling [Unknown]
  - Blood pressure increased [Unknown]
  - Lymphadenopathy [Unknown]
  - Gingival pain [Unknown]
  - Ear inflammation [Unknown]
  - Swelling face [Unknown]
  - Dyspnoea [Unknown]
  - Chest pain [Unknown]
  - Arthritis [Not Recovered/Not Resolved]
  - Arthralgia [Not Recovered/Not Resolved]
  - Pain in extremity [Not Recovered/Not Resolved]
  - Joint stiffness [Not Recovered/Not Resolved]
  - Renal disorder [Unknown]
  - Drug effect less than expected [Unknown]
